FAERS Safety Report 24879155 (Version 1)
Quarter: 2025Q1

REPORT INFORMATION
  Report Type: Spontaneous
  Country: CN (occurrence: CN)
  Receive Date: 20250123
  Receipt Date: 20250123
  Transmission Date: 20250409
  Serious: Yes (Life-Threatening, Hospitalization)
  Sender: NOVARTIS
  Company Number: CN-002147023-NVSC2025CN012093

PATIENT
  Age: 60 Year
  Sex: Female
  Weight: 59.2 kg

DRUGS (1)
  1. SACUBITRIL\VALSARTAN [Suspect]
     Active Substance: SACUBITRIL\VALSARTAN
     Indication: Hypertension
     Dosage: 50.000 MG, BID
     Route: 048
     Dates: start: 20241211, end: 20241211

REACTIONS (4)
  - Blood potassium increased [Recovered/Resolved]
  - Chest discomfort [Unknown]
  - Tachypnoea [Unknown]
  - Oedema [Unknown]

NARRATIVE: CASE EVENT DATE: 20241211
